FAERS Safety Report 8833084 (Version 1)
Quarter: 2012Q4

REPORT INFORMATION
  Report Type: Spontaneous
  Country: GB (occurrence: None)
  Receive Date: 20121005
  Receipt Date: 20121005
  Transmission Date: 20130627
  Serious: Yes (Death, Congenital Anomaly)
  Sender: FDA-Public Use
  Company Number: 2012GMK003853

PATIENT

DRUGS (4)
  1. TOPIRAMATE [Suspect]
     Indication: EPILEPSY
     Route: 064
  2. ACETAZOLAMIDE [Suspect]
  3. TEGRETOL [Suspect]
     Route: 064
  4. ZONISAMIDE [Suspect]
     Route: 064

REACTIONS (3)
  - Death neonatal [None]
  - Congenital intestinal malformation [None]
  - Foetal exposure during pregnancy [None]
